FAERS Safety Report 9664175 (Version 1)
Quarter: 2013Q4

REPORT INFORMATION
  Report Type: Spontaneous
  Country: US (occurrence: None)
  Receive Date: 20131030
  Receipt Date: 20131030
  Transmission Date: 20140711
  Serious: No
  Sender: FDA-Public Use
  Company Number: None

PATIENT
  Age: 37 Year
  Sex: Male
  Weight: 103.42 kg

DRUGS (1)
  1. VALSARTAN-HCTZ [Suspect]
     Indication: HYPERTENSION
     Dosage: 1 TAB BY MOUTH ONE TIME DAILY 2-3 MONTHS AGO TO 1-21-13
     Route: 048
     Dates: end: 20130121

REACTIONS (1)
  - Irritability [None]
